FAERS Safety Report 9109012 (Version 1)
Quarter: 2013Q1

REPORT INFORMATION
  Report Type: Spontaneous
  Country: US (occurrence: US)
  Receive Date: 20130222
  Receipt Date: 20130222
  Transmission Date: 20140127
  Serious: No
  Sender: FDA-Public Use
  Company Number: US-ASTRAZENECA-2013SE05380

PATIENT
  Age: 51 Year
  Sex: Female
  Weight: 47.6 kg

DRUGS (4)
  1. NEXIUM [Suspect]
     Indication: GASTRITIS
     Route: 048
     Dates: start: 201212
  2. NEXIUM [Suspect]
     Indication: GASTRITIS
     Route: 048
  3. NEXIUM [Suspect]
     Indication: GASTRITIS
     Route: 048
     Dates: end: 201301
  4. CLONAZEPAM [Suspect]
     Indication: SCIATICA
     Route: 048
     Dates: start: 2011

REACTIONS (23)
  - Chest pain [Recovered/Resolved]
  - Thirst [Unknown]
  - Dyspnoea [Recovered/Resolved]
  - Muscle spasms [Unknown]
  - Micturition disorder [Unknown]
  - Pyrexia [Unknown]
  - Heart rate irregular [Unknown]
  - Feeling jittery [Unknown]
  - Weight decreased [Unknown]
  - Decreased appetite [Unknown]
  - Feeling abnormal [Unknown]
  - Therapeutic response unexpected [Unknown]
  - Hyperhidrosis [Recovered/Resolved]
  - Headache [Recovered/Resolved]
  - Insomnia [Unknown]
  - Dysgeusia [Unknown]
  - Dry mouth [Unknown]
  - Diarrhoea [Unknown]
  - Myalgia [Unknown]
  - Malaise [Unknown]
  - Dizziness [Unknown]
  - Off label use [Unknown]
  - Drug ineffective [Unknown]
